FAERS Safety Report 10572483 (Version 2)
Quarter: 2014Q4

REPORT INFORMATION
  Report Type: Report from Study
  Country: BR (occurrence: BR)
  Receive Date: 20141110
  Receipt Date: 20141110
  Transmission Date: 20150529
  Serious: Yes (Hospitalization)
  Sender: FDA-Public Use
  Company Number: BR-ROCHE-1469749

PATIENT
  Sex: Female
  Weight: 30 kg

DRUGS (5)
  1. ENALAPRIL [Concomitant]
     Active Substance: ENALAPRIL
  2. INSULIN [Concomitant]
     Active Substance: INSULIN NOS
     Indication: DIABETES MELLITUS
  3. METICORTEN [Concomitant]
     Active Substance: PREDNISONE
  4. ZYPRED [Concomitant]
     Active Substance: GATIFLOXACIN\PREDNISOLONE ACETATE
  5. ACTEMRA [Suspect]
     Active Substance: TOCILIZUMAB
     Indication: RHEUMATOID ARTHRITIS
     Dosage: LATEST INFUSION ON 17/SEP/2014.
     Route: 065
     Dates: start: 20140816

REACTIONS (7)
  - Ear pain [Unknown]
  - Weight decreased [Unknown]
  - Decreased immune responsiveness [Unknown]
  - Pharyngitis [Unknown]
  - Sinusitis [Unknown]
  - Local swelling [Not Recovered/Not Resolved]
  - Eye infection [Unknown]
